FAERS Safety Report 4334040-8 (Version None)
Quarter: 2004Q1

REPORT INFORMATION
  Report Type: 
  Country: None (occurrence: None)
  Receive Date: 20040329
  Receipt Date: 20031222
  Transmission Date: 20041129
  Serious: No
  Sender: FDA-Public Use
  Company Number: 03P-163-0245416-00

PATIENT
  Age: 53 Year
  Sex: Female
  Weight: 40.8237 kg

DRUGS (9)
  1. HUMIRA [Suspect]
     Indication: RHEUMATOID ARTHRITIS
     Dosage: 40 MG, 1 IN 1 WK, SUBCUTANEOUS
     Route: 058
     Dates: start: 20031209
  2. RISENDRONATE SODIUM [Concomitant]
  3. PREDNISONE [Concomitant]
  4. HYDROXYCHLOROQUINE PHOSPHATE [Concomitant]
  5. PROPACET 100 [Concomitant]
  6. CODEINE [Concomitant]
  7. PAROXETINE HCL [Concomitant]
  8. LORAZEPAM [Concomitant]
  9. SLEEPING PILL [Concomitant]

REACTIONS (3)
  - COUGH [None]
  - PAIN EXACERBATED [None]
  - RASH [None]
